FAERS Safety Report 24422794 (Version 4)
Quarter: 2025Q2

REPORT INFORMATION
  Report Type: Spontaneous
  Country: FR (occurrence: FR)
  Receive Date: 20241010
  Receipt Date: 20250422
  Transmission Date: 20250717
  Serious: Yes (Death, Other)
  Sender: CELLTRION
  Company Number: FR-BRISTOL-MYERS SQUIBB COMPANY-2024-051470

PATIENT

DRUGS (5)
  1. RITUXIMAB [Suspect]
     Active Substance: RITUXIMAB
     Indication: Diffuse large B-cell lymphoma
     Route: 065
     Dates: start: 202211
  2. RITUXIMAB [Suspect]
     Active Substance: RITUXIMAB
     Indication: Central nervous system lymphoma
  3. LENALIDOMIDE [Suspect]
     Active Substance: LENALIDOMIDE
     Indication: Diffuse large B-cell lymphoma
     Route: 065
     Dates: start: 202211
  4. LENALIDOMIDE [Suspect]
     Active Substance: LENALIDOMIDE
     Indication: Central nervous system lymphoma
  5. METHOTREXATE [Concomitant]
     Active Substance: METHOTREXATE

REACTIONS (7)
  - Disease progression [Fatal]
  - Cardio-respiratory arrest [Fatal]
  - Spinal cord neoplasm [Fatal]
  - Off label use [Fatal]
  - Epilepsy [Unknown]
  - Off label use [Unknown]
  - Product use issue [Unknown]
